FAERS Safety Report 22168820 (Version 2)
Quarter: 2023Q2

REPORT INFORMATION
  Report Type: Spontaneous
  Country: US (occurrence: US)
  Receive Date: 20230403
  Receipt Date: 20230515
  Transmission Date: 20230721
  Serious: Yes (Other)
  Sender: FDA-Public Use
  Company Number: US-SAGENT PHARMACEUTICALS-2023SAG000076

PATIENT
  Age: 22 Year
  Sex: Male

DRUGS (1)
  1. HALOPERIDOL LACTATE [Suspect]
     Active Substance: HALOPERIDOL LACTATE
     Indication: Alcohol poisoning
     Dosage: 5 MILLIGRAM, ONCE
     Route: 030

REACTIONS (3)
  - Wolff-Parkinson-White syndrome [Unknown]
  - Atrioventricular block [Unknown]
  - Off label use [Unknown]
